FAERS Safety Report 13486145 (Version 1)
Quarter: 2017Q2

REPORT INFORMATION
  Report Type: Spontaneous
  Country: US (occurrence: US)
  Receive Date: 20170426
  Receipt Date: 20170426
  Transmission Date: 20170830
  Serious: Yes (Other)
  Sender: FDA-Public Use
  Company Number: US-PFIZER INC-2017168514

PATIENT
  Age: 42 Year
  Sex: Male

DRUGS (3)
  1. VIAGRA [Suspect]
     Active Substance: SILDENAFIL CITRATE
     Dosage: UNK,ONE WEEK LATER, HE TOOK A SECOND DOSE
  2. SERTRALINE [Concomitant]
     Active Substance: SERTRALINE HYDROCHLORIDE
     Indication: DEPRESSION
     Dosage: UNK
  3. VIAGRA [Suspect]
     Active Substance: SILDENAFIL CITRATE
     Indication: SEXUAL DYSFUNCTION
     Dosage: 50 MG, UNK

REACTIONS (1)
  - Optic ischaemic neuropathy [Recovering/Resolving]
